FAERS Safety Report 16927316 (Version 2)
Quarter: 2019Q4

REPORT INFORMATION
  Report Type: Spontaneous
  Country: GB (occurrence: GB)
  Receive Date: 20191016
  Receipt Date: 20191105
  Transmission Date: 20200122
  Serious: Yes (Hospitalization)
  Sender: FDA-Public Use
  Company Number: GB-009507513-1909GBR014834

PATIENT
  Sex: Male

DRUGS (2)
  1. THERAPY UNSPECIFIED [Suspect]
     Active Substance: UNSPECIFIED INGREDIENT
     Dosage: A PATCH
  2. SINEMET PLUS [Suspect]
     Active Substance: CARBIDOPA\LEVODOPA
     Dosage: 125 MILLIGRAM
     Route: 048

REACTIONS (3)
  - Dysphagia [Unknown]
  - Adverse event [Unknown]
  - Malaise [Unknown]
